FAERS Safety Report 6247724-1 (Version None)
Quarter: 2009Q2

REPORT INFORMATION
  Report Type: 
  Country: None (occurrence: None)
  Receive Date: 20090626
  Receipt Date: 20090616
  Transmission Date: 20091009
  Serious: Yes (Hospitalization)
  Sender: FDA-Public Use
  Company Number: PHHY2009FR24209

PATIENT
  Sex: Male

DRUGS (5)
  1. NEORAL [Suspect]
     Indication: COLITIS ULCERATIVE
     Dosage: UNK
     Dates: start: 20041201, end: 20050401
  2. IMUREL [Suspect]
     Dosage: 100 MG, QD
  3. SALAZOPYRINE [Suspect]
     Dosage: 500 MG, BID
  4. FOSAMAX [Suspect]
     Dosage: UNK
     Dates: start: 20060101, end: 20081001
  5. CORTANCYL [Suspect]
     Dosage: 1 MG/KG/DAY
     Dates: start: 20031101, end: 20050401

REACTIONS (3)
  - ARTHRALGIA [None]
  - OSTEONECROSIS [None]
  - PROSTHESIS IMPLANTATION [None]
